FAERS Safety Report 12474379 (Version 1)
Quarter: 2016Q2

REPORT INFORMATION
  Report Type: Spontaneous
  Country: US (occurrence: None)
  Receive Date: 20160616
  Receipt Date: 20160616
  Transmission Date: 20160815
  Serious: Yes (Other)
  Sender: FDA-Public Use
  Company Number: None

PATIENT
  Age: 45 Year
  Sex: Female
  Weight: 143.79 kg

DRUGS (23)
  1. LASIX [Concomitant]
     Active Substance: FUROSEMIDE
  2. OMEPREZOLE [Concomitant]
     Active Substance: OMEPRAZOLE
  3. AMBIEN [Concomitant]
     Active Substance: ZOLPIDEM TARTRATE
  4. LEVSIN [Concomitant]
     Active Substance: HYOSCYAMINE SULFATE
  5. CIPROFLOXACIN 500MG TABLETS, 500 MG AUROBINDO [Suspect]
     Active Substance: CIPROFLOXACIN
     Indication: DIVERTICULITIS
     Route: 048
     Dates: start: 20160510, end: 20160510
  6. TOPAMAX [Concomitant]
     Active Substance: TOPIRAMATE
  7. ALDACTONE [Concomitant]
     Active Substance: SPIRONOLACTONE
  8. CELLCEPT [Concomitant]
     Active Substance: MYCOPHENOLATE MOFETIL\MYCOPHENOLATE MOFETIL HYDROCHLORIDE
  9. PHENERGAN [Concomitant]
     Active Substance: PROMETHAZINE HYDROCHLORIDE
  10. MAGNESIUM [Concomitant]
     Active Substance: MAGNESIUM
  11. WELLBUTRIN [Concomitant]
     Active Substance: BUPROPION HYDROCHLORIDE
  12. IRON [Concomitant]
     Active Substance: IRON
  13. SYNTHROID [Concomitant]
     Active Substance: LEVOTHYROXINE SODIUM
  14. ZANAFLEX [Concomitant]
     Active Substance: TIZANIDINE HYDROCHLORIDE
  15. ALLEGRA [Concomitant]
     Active Substance: FEXOFENADINE HYDROCHLORIDE
  16. PEPCID [Concomitant]
     Active Substance: FAMOTIDINE
  17. LOPRESSOR [Concomitant]
     Active Substance: METOPROLOL TARTRATE
  18. BUSPAR [Concomitant]
     Active Substance: BUSPIRONE HYDROCHLORIDE
  19. MESTINON [Concomitant]
     Active Substance: PYRIDOSTIGMINE BROMIDE
  20. LOFIBRA [Concomitant]
     Active Substance: FENOFIBRATE
  21. EFFEXOR XR [Concomitant]
     Active Substance: VENLAFAXINE HYDROCHLORIDE
  22. NASONEX [Concomitant]
     Active Substance: MOMETASONE FUROATE
  23. ACIDOPHILUS [Concomitant]
     Active Substance: LACTOBACILLUS ACIDOPHILUS

REACTIONS (2)
  - Myasthenia gravis crisis [None]
  - Hallucination [None]

NARRATIVE: CASE EVENT DATE: 20160510
